FAERS Safety Report 5279079-3 (Version None)
Quarter: 2007Q1

REPORT INFORMATION
  Report Type: 
  Country: None (occurrence: None)
  Receive Date: 20070328
  Receipt Date: 20070316
  Transmission Date: 20070707
  Serious: Yes (Hospitalization, Other)
  Sender: FDA-Public Use
  Company Number: PHNU2007DE01241

PATIENT
  Sex: Female

DRUGS (2)
  1. LEPONEX [Suspect]
  2. THYROXIN [Suspect]

REACTIONS (5)
  - ACCIDENTAL EXPOSURE [None]
  - AMNESIA [None]
  - APHASIA [None]
  - CEREBROVASCULAR ACCIDENT [None]
  - SPEECH DISORDER [None]
